APPROVED DRUG PRODUCT: ACYCLOVIR
Active Ingredient: ACYCLOVIR
Strength: 5%
Dosage Form/Route: CREAM;TOPICAL
Application: A206770 | Product #001 | TE Code: BX
Applicant: ZYDUS LIFESCIENCES LTD
Approved: Feb 28, 2023 | RLD: No | RS: No | Type: RX